FAERS Safety Report 6370971-5 (Version None)
Quarter: 2009Q3

REPORT INFORMATION
  Report Type: 
  Country: None (occurrence: None)
  Receive Date: 20090921
  Receipt Date: 20090921
  Transmission Date: 20100115
  Serious: Yes (Life-Threatening, Hospitalization, Disabling)
  Sender: FDA-Public Use
  Company Number: None

PATIENT
  Age: 12 Year
  Sex: Male
  Weight: 32.659 kg

DRUGS (1)
  1. ELIDEL [Suspect]
     Indication: ECZEMA
     Dosage: APPLIED TO EFFECTED AREAS 2X'S DAILY SKIN
     Dates: start: 20020101, end: 20070101

REACTIONS (1)
  - ACUTE LYMPHOCYTIC LEUKAEMIA [None]
